FAERS Safety Report 9736650 (Version 2)
Quarter: 2015Q3

REPORT INFORMATION
  Report Type: Spontaneous
  Country: US (occurrence: US)
  Receive Date: 20131206
  Receipt Date: 20150804
  Transmission Date: 20151125
  Serious: No
  Sender: FDA-Public Use
  Company Number: US-GILEAD-2009-0022730

PATIENT
  Age: 70 Year
  Sex: Male
  Weight: 86.64 kg

DRUGS (14)
  1. LETAIRIS [Suspect]
     Active Substance: AMBRISENTAN
     Indication: PULMONARY ARTERIAL HYPERTENSION
     Route: 048
     Dates: start: 20090325
  2. COMBIVENT [Concomitant]
     Active Substance: ALBUTEROL SULFATE\IPRATROPIUM BROMIDE
  3. ZOCOR [Concomitant]
     Active Substance: SIMVASTATIN
  4. ADVIL [Concomitant]
     Active Substance: IBUPROFEN
  5. METOLAZONE. [Concomitant]
     Active Substance: METOLAZONE
  6. GLIPIZIDE. [Concomitant]
     Active Substance: GLIPIZIDE
  7. ECOTRIN [Concomitant]
     Active Substance: ASPIRIN
  8. LUPRON DEPOT-3 [Concomitant]
  9. TEMAZEPAM. [Concomitant]
     Active Substance: TEMAZEPAM
  10. MULTIVITAMIN [Concomitant]
     Active Substance: VITAMINS
  11. LASIX [Concomitant]
     Active Substance: FUROSEMIDE
  12. ALBUTEROL. [Concomitant]
     Active Substance: ALBUTEROL
  13. METFORMIN [Concomitant]
     Active Substance: METFORMIN HYDROCHLORIDE
  14. POTASSIUM CHLORIDE. [Concomitant]
     Active Substance: POTASSIUM CHLORIDE

REACTIONS (2)
  - Feeling of body temperature change [Unknown]
  - Nasal congestion [Unknown]
